FAERS Safety Report 7228021-4 (Version None)
Quarter: 2011Q1

REPORT INFORMATION
  Report Type: 
  Country: None (occurrence: None)
  Receive Date: 20110111
  Receipt Date: 20110111
  Transmission Date: 20110831
  Serious: Yes (Other)
  Sender: FDA-Public Use
  Company Number: None

PATIENT
  Age: 91 Year
  Sex: Male
  Weight: 60.3284 kg

DRUGS (1)
  1. PUPIL DILOTING FLUID MFR: AKORN INA, LAKE FOREST, IL [Suspect]
     Indication: OPHTHALMOLOGICAL EXAMINATION
     Dosage: 1 DROP EACH EYE ONCE
     Dates: start: 20100830

REACTIONS (7)
  - FALL [None]
  - DISORIENTATION [None]
  - BLOOD PRESSURE INCREASED [None]
  - LOSS OF CONSCIOUSNESS [None]
  - CONFUSIONAL STATE [None]
  - MEMORY IMPAIRMENT [None]
  - FACE INJURY [None]
